FAERS Safety Report 20115380 (Version 1)
Quarter: 2021Q4

REPORT INFORMATION
  Report Type: Spontaneous
  Country: US (occurrence: US)
  Receive Date: 20211125
  Receipt Date: 20211125
  Transmission Date: 20220304
  Serious: Yes (Hospitalization, Other)
  Sender: FDA-Public Use
  Company Number: US-Shilpa Medicare Limited-SML-US-2021-01384

PATIENT
  Age: 53 Year
  Sex: Female

DRUGS (3)
  1. CAPECITABINE [Suspect]
     Active Substance: CAPECITABINE
     Indication: Hepatic neuroendocrine tumour
  2. OCTREOTIDE [Suspect]
     Active Substance: OCTREOTIDE
     Indication: Hepatic neuroendocrine tumour
  3. TEMOZOLOMIDE [Suspect]
     Active Substance: TEMOZOLOMIDE
     Indication: Hepatic neuroendocrine tumour

REACTIONS (2)
  - Condition aggravated [Unknown]
  - Drug ineffective [Unknown]
